FAERS Safety Report 10166232 (Version 2)
Quarter: 2014Q2

REPORT INFORMATION
  Report Type: Not Available
  Country: US (occurrence: US)
  Receive Date: 20140512
  Receipt Date: 20140527
  Transmission Date: 20141212
  Serious: Yes (Other)
  Sender: FDA-Public Use
  Company Number: US-LUPIN PHARMACEUTICALS INC.-E2B_00001994

PATIENT
  Age: 48 Year
  Sex: Female
  Weight: 72.64 kg

DRUGS (3)
  1. DULOXETINE DELAYED-RELEASE 30 MG CAPSULES USP [Suspect]
     Indication: ANXIETY
     Dates: start: 20140325, end: 20140425
  2. DULOXETINE DELAYED-RELEASE 30 MG CAPSULES USP [Suspect]
     Indication: DEPRESSION
  3. SYNTHROID [Concomitant]
     Indication: PRODUCT USED FOR UNKNOWN INDICATION
     Route: 065

REACTIONS (6)
  - Nervous system disorder [Recovered/Resolved]
  - Suicidal ideation [Recovered/Resolved]
  - Crying [Recovered/Resolved]
  - Dry mouth [Recovered/Resolved]
  - Hallucination, visual [Recovered/Resolved]
  - Blood pressure fluctuation [Recovered/Resolved]
